FAERS Safety Report 5337726-1 (Version None)
Quarter: 2007Q2

REPORT INFORMATION
  Report Type: 
  Country: None (occurrence: None)
  Receive Date: 20070524
  Receipt Date: 20070515
  Transmission Date: 20071010
  Serious: No
  Sender: FDA-Public Use
  Company Number: JPI-P-001319

PATIENT
  Age: 54 Year
  Sex: Female

DRUGS (3)
  1. XYREM [Suspect]
     Indication: FIBROMYALGIA
     Dosage: 0.3 GM (0.3 GM, 1 IN 1 D, ORAL
     Route: 048
     Dates: start: 20031201
  2. XYREM [Suspect]
     Indication: INSOMNIA
     Dosage: 0.3 GM (0.3 GM, 1 IN 1 D, ORAL
     Route: 048
     Dates: start: 20031201
  3. QUININE SULFATE [Concomitant]

REACTIONS (2)
  - GASTROOESOPHAGEAL REFLUX DISEASE [None]
  - VOCAL CORD PARALYSIS [None]
